FAERS Safety Report 20779742 (Version 1)
Quarter: 2022Q2

REPORT INFORMATION
  Report Type: Spontaneous
  Country: US (occurrence: US)
  Receive Date: 20220503
  Receipt Date: 20220503
  Transmission Date: 20220721
  Serious: No
  Sender: FDA-Public Use
  Company Number: US-PFIZER INC-2020194665

PATIENT
  Age: 70 Year
  Sex: Male

DRUGS (3)
  1. INLYTA [Suspect]
     Active Substance: AXITINIB
     Indication: Metastatic renal cell carcinoma
     Dosage: 2 TABLETS OF 120 MG, TWICE DAILY
     Route: 048
  2. INLYTA [Suspect]
     Active Substance: AXITINIB
     Dosage: 5 MG
  3. INLYTA [Suspect]
     Active Substance: AXITINIB
     Dosage: 1 MG, ALTERNATE DAY ( (2 TABS BID EVERY OTHER DAY)
     Dates: start: 20200622

REACTIONS (3)
  - Product prescribing error [Unknown]
  - Off label use [Unknown]
  - Headache [Recovered/Resolved]
